FAERS Safety Report 6794617-7 (Version None)
Quarter: 2010Q2

REPORT INFORMATION
  Report Type: 
  Country: None (occurrence: None)
  Receive Date: 20100625
  Receipt Date: 20100618
  Transmission Date: 20101027
  Serious: Yes (Hospitalization)
  Sender: FDA-Public Use
  Company Number: US-JNJFOC-20100104177

PATIENT
  Sex: Female
  Weight: 64.86 kg

DRUGS (2)
  1. FENTANYL-100 [Suspect]
     Indication: PAIN
     Route: 062
  2. FENTANYL-100 [Suspect]
     Indication: BACK PAIN
     Route: 062

REACTIONS (7)
  - BACK PAIN [None]
  - DRUG ADMINISTRATION ERROR [None]
  - EYE PAIN [None]
  - EYE SWELLING [None]
  - EYEBALL RUPTURE [None]
  - FALL [None]
  - URINARY TRACT INFECTION [None]
